FAERS Safety Report 15523648 (Version 1)
Quarter: 2018Q4

REPORT INFORMATION
  Report Type: Report from Study
  Country: DE (occurrence: DE)
  Receive Date: 20181018
  Receipt Date: 20181018
  Transmission Date: 20190205
  Serious: Yes (Hospitalization)
  Sender: FDA-Public Use
  Company Number: DE-ROCHE-2200322

PATIENT

DRUGS (2)
  1. RITUXIMAB. [Suspect]
     Active Substance: RITUXIMAB
     Indication: RHEUMATOID ARTHRITIS
     Route: 065
  2. TRUXIMA [Concomitant]
     Active Substance: RITUXIMAB-ABBS

REACTIONS (2)
  - Cellulitis [Recovered/Resolved]
  - Soft tissue injury [Recovered/Resolved]

NARRATIVE: CASE EVENT DATE: 20180318
